FAERS Safety Report 14471235 (Version 1)
Quarter: 2018Q1

REPORT INFORMATION
  Report Type: Spontaneous
  Country: US (occurrence: US)
  Receive Date: 20180131
  Receipt Date: 20180131
  Transmission Date: 20180509
  Serious: No
  Sender: FDA-Public Use
  Company Number: US-PRAGMA PHARMACEUTICALS, LLC-2017PRG00056

PATIENT
  Age: 52 Year
  Sex: Female

DRUGS (6)
  1. KEFLEX [Suspect]
     Active Substance: CEPHALEXIN
     Indication: STAPHYLOCOCCAL BACTERAEMIA
     Dosage: 500 MG, 2X/DAY
     Route: 048
     Dates: start: 20170505
  2. JANUVIA [Concomitant]
     Active Substance: SITAGLIPTIN PHOSPHATE
  3. VICTOZA [Concomitant]
     Active Substance: LIRAGLUTIDE
  4. KEFLEX [Suspect]
     Active Substance: CEPHALEXIN
     Indication: STREPTOCOCCAL BACTERAEMIA
  5. REGRANEX [Suspect]
     Active Substance: BECAPLERMIN
     Indication: INCISION SITE ULCER
     Dosage: UNK, 1X/DAY
     Route: 061
     Dates: start: 20170505
  6. LISINOPRIL. [Concomitant]
     Active Substance: LISINOPRIL

REACTIONS (1)
  - Skin burning sensation [Unknown]

NARRATIVE: CASE EVENT DATE: 20170505
